FAERS Safety Report 19565537 (Version 5)
Quarter: 2023Q1

REPORT INFORMATION
  Report Type: Report from Study
  Country: US (occurrence: US)
  Receive Date: 20210715
  Receipt Date: 20230227
  Transmission Date: 20230417
  Serious: Yes (Hospitalization, Other)
  Sender: FDA-Public Use
  Company Number: US-TAKEDA-2021TUS018046

PATIENT
  Age: 54 Year
  Sex: Female

DRUGS (4)
  1. LANADELUMAB [Suspect]
     Active Substance: LANADELUMAB
     Indication: Hereditary angioedema
     Dosage: 300 MILLIGRAM, Q4WEEKS
     Route: 058
     Dates: start: 201907
  2. LANADELUMAB [Suspect]
     Active Substance: LANADELUMAB
     Indication: Immune system disorder
     Dosage: 2 MILLILITER, Q4WEEKS
     Route: 058
     Dates: start: 20190708
  3. LANADELUMAB [Suspect]
     Active Substance: LANADELUMAB
     Dosage: 300 MILLIGRAM, Q4WEEKS
     Route: 058
     Dates: start: 20190709
  4. LANADELUMAB [Suspect]
     Active Substance: LANADELUMAB
     Dosage: 300 MILLIGRAM, Q4WEEKS
     Route: 058
     Dates: start: 20190719

REACTIONS (8)
  - Kidney infection [Unknown]
  - Urinary tract infection [Unknown]
  - Escherichia infection [Unknown]
  - Weight decreased [Unknown]
  - Weight increased [Unknown]
  - Injection site pruritus [Unknown]
  - Injection site swelling [Unknown]
  - Product availability issue [Unknown]

NARRATIVE: CASE EVENT DATE: 20210608
